FAERS Safety Report 10133326 (Version 5)
Quarter: 2014Q4

REPORT INFORMATION
  Report Type: Spontaneous
  Country: JP (occurrence: JP)
  Receive Date: 20140428
  Receipt Date: 20141203
  Transmission Date: 20150528
  Serious: Yes (Death, Life-Threatening, Hospitalization)
  Sender: FDA-Public Use
  Company Number: JP-ASTRAZENECA-2014SE11917

PATIENT
  Age: 24493 Day
  Sex: Male
  Weight: 68 kg

DRUGS (7)
  1. SULFAMETHOXAZOLE AND TRIMETHOPRIM [Suspect]
     Active Substance: SULFAMETHOXAZOLE\TRIMETHOPRIM
     Dosage: DOSE UNKNOWN
     Route: 065
     Dates: end: 20140416
  2. DILTIAZEM HYDROCHLORIDE R [Concomitant]
     Active Substance: DILTIAZEM HYDROCHLORIDE
     Indication: HYPERTENSION
     Route: 048
     Dates: end: 20140124
  3. CASODEX [Suspect]
     Active Substance: BICALUTAMIDE
     Indication: PROSTATE CANCER
     Dosage: NON-ASTRAZENECA GENERIC BICALUTAMIDE, 80 MG DAILY
     Route: 048
     Dates: start: 20131011, end: 20131126
  4. BAKTAR [Suspect]
     Active Substance: SULFAMETHOXAZOLE\TRIMETHOPRIM
     Dosage: DOSE UNKNOWN
     Route: 065
     Dates: end: 20140416
  5. CASODEX [Suspect]
     Active Substance: BICALUTAMIDE
     Indication: PROSTATE CANCER
     Route: 048
     Dates: start: 20131127, end: 20140122
  6. KANAMYCIN [Suspect]
     Active Substance: KANAMYCIN\KANAMYCIN A SULFATE
     Dosage: DOSE UNKNOWN
     Route: 065
  7. OLMETEC [Concomitant]
     Active Substance: OLMESARTAN MEDOXOMIL
     Indication: HYPERTENSION
     Route: 048
     Dates: end: 20140124

REACTIONS (5)
  - Therapy cessation [Unknown]
  - Drug-induced liver injury [Fatal]
  - Toxic epidermal necrolysis [Fatal]
  - Acute hepatic failure [Fatal]
  - Palmoplantar keratoderma [Unknown]

NARRATIVE: CASE EVENT DATE: 20140122
